FAERS Safety Report 25685066 (Version 1)
Quarter: 2025Q3

REPORT INFORMATION
  Report Type: Spontaneous
  Country: US (occurrence: US)
  Receive Date: 20250815
  Receipt Date: 20250815
  Transmission Date: 20251021
  Serious: Yes (Life-Threatening, Other)
  Sender: DR REDDYS
  Company Number: US-DRL-USA-USA/2025/08/012152

PATIENT
  Age: 31 Year
  Sex: Male

DRUGS (2)
  1. LORAZEPAM [Suspect]
     Active Substance: LORAZEPAM
     Indication: Product used for unknown indication
  2. BENZONATATE [Suspect]
     Active Substance: BENZONATATE
     Indication: Product used for unknown indication

REACTIONS (1)
  - Intentional product misuse [Unknown]
